FAERS Safety Report 19236045 (Version 3)
Quarter: 2021Q2

REPORT INFORMATION
  Report Type: Spontaneous
  Country: US (occurrence: US)
  Receive Date: 20210510
  Receipt Date: 20210604
  Transmission Date: 20210717
  Serious: No
  Sender: FDA-Public Use
  Company Number: US-SA-2021SA152125

PATIENT
  Age: 30 Year
  Sex: Female

DRUGS (26)
  1. FLONASE ALLERGY RELIEF [Concomitant]
     Active Substance: FLUTICASONE PROPIONATE
  2. DUPIXENT [Suspect]
     Active Substance: DUPILUMAB
     Indication: AUTONOMIC NEUROPATHY
  3. ALLEGRA ALLERGY [Concomitant]
     Active Substance: FEXOFENADINE HYDROCHLORIDE
  4. FIBERLAX [Concomitant]
  5. PROPRANOLOL HCL [Concomitant]
     Active Substance: PROPRANOLOL HYDROCHLORIDE
  6. HEPARIN [Concomitant]
     Active Substance: HEPARIN SODIUM
  7. LIDOCAINE. [Concomitant]
     Active Substance: LIDOCAINE
  8. GAMUNEX?C [Suspect]
     Active Substance: HUMAN IMMUNOGLOBULIN G
     Route: 042
  9. DIPHENHYDRAMINE. [Concomitant]
     Active Substance: DIPHENHYDRAMINE
  10. SODIUM CHLORIDE. [Concomitant]
     Active Substance: SODIUM CHLORIDE
  11. EPINEPHRINE. [Concomitant]
     Active Substance: EPINEPHRINE
  12. COVID?19 VACCINE NOS. [Concomitant]
     Active Substance: COVID-19 VACCINE NOS
     Indication: COVID-19 IMMUNISATION
  13. LMX4 [Suspect]
     Active Substance: LIDOCAINE
  14. MIRALAX [Concomitant]
     Active Substance: POLYETHYLENE GLYCOL 3350
     Dosage: 17 G/DOSE POWDER
  15. CLARITINE [Concomitant]
     Active Substance: LORATADINE
  16. DUPIXENT [Suspect]
     Active Substance: DUPILUMAB
     Indication: ORTHOSTATIC HYPOTENSION
     Dosage: 300 MG, QOW
     Route: 058
     Dates: start: 202005
  17. DUPIXENT [Suspect]
     Active Substance: DUPILUMAB
     Indication: CEREBRAL PALSY
  18. DUPIXENT [Suspect]
     Active Substance: DUPILUMAB
     Indication: MIGRAINE WITHOUT AURA
  19. AMITRIPTYLINE HCL [Concomitant]
     Active Substance: AMITRIPTYLINE
  20. VITAMIN B COMPLEX [Concomitant]
     Active Substance: CYANOCOBALAMIN\DEXPANTHENOL\NIACINAMIDE\PYRIDOXINE HYDROCHLORIDE\RIBOFLAVIN 5^-PHOSPHATE SODIUM\THIAMINE HYDROCHLORIDE\VITAMIN B COMPLEX
  21. GABAPENTIN. [Concomitant]
     Active Substance: GABAPENTIN
  22. AMERGE [Concomitant]
     Active Substance: NARATRIPTAN HYDROCHLORIDE
  23. BOTOX [Concomitant]
     Active Substance: ONABOTULINUMTOXINA
  24. VITAMIN D3 [Concomitant]
     Active Substance: CHOLECALCIFEROL
  25. NORMAL SALINE [Concomitant]
     Active Substance: SODIUM CHLORIDE
  26. ACETAMINOPHEN. [Concomitant]
     Active Substance: ACETAMINOPHEN

REACTIONS (8)
  - Feeling abnormal [Unknown]
  - Nausea [Unknown]
  - Migraine [Unknown]
  - Product use in unapproved indication [Unknown]
  - Fatigue [Unknown]
  - Headache [Unknown]
  - Drug hypersensitivity [Unknown]
  - Decreased appetite [Unknown]

NARRATIVE: CASE EVENT DATE: 2021
